FAERS Safety Report 9949273 (Version 2)
Quarter: 2014Q1

REPORT INFORMATION
  Report Type: Spontaneous
  Country: JP (occurrence: JP)
  Receive Date: 20140304
  Receipt Date: 20140304
  Transmission Date: 20141002
  Serious: Yes (Death)
  Sender: FDA-Public Use
  Company Number: JP-ELI_LILLY_AND_COMPANY-JP201402001149

PATIENT
  Age: 75 Year
  Sex: Male

DRUGS (19)
  1. CYMBALTA [Suspect]
     Indication: DEPRESSION
     Dosage: 20 MG, QD
     Route: 048
     Dates: start: 20120831, end: 20131126
  2. LYRICA [Concomitant]
     Dosage: UNK
     Dates: start: 20110325
  3. VOLTAREN                           /00372302/ [Concomitant]
     Route: 062
  4. TRAMADOL HYDROCHLORIDE AND ACETAMINOPHEN [Concomitant]
  5. NICORANDIL [Concomitant]
     Dosage: 10 MG, UNK
     Route: 048
  6. ARTIST [Concomitant]
     Dosage: 2.5 MG, UNK
     Route: 048
  7. NEXIUM                             /01479302/ [Concomitant]
     Dosage: 20 MG, UNK
     Route: 048
  8. CLOPIDOGREL SULFATE [Concomitant]
     Dosage: 75 MG, UNK
     Route: 048
  9. WARFARIN POTASSIUM [Concomitant]
     Dosage: 1 DF, UNK
     Route: 048
  10. AMOBAN [Concomitant]
  11. ANPLAG [Concomitant]
  12. SEDIEL [Concomitant]
     Dosage: 10 MG, UNK
     Route: 048
  13. DIOVAN [Concomitant]
     Dosage: 160 MG, UNK
     Route: 048
  14. PURSENNID                          /00571902/ [Concomitant]
     Dosage: 12 MG, UNK
     Route: 048
  15. FLUITRAN [Concomitant]
     Dosage: 0.5 MG, UNK
     Route: 048
  16. TALION                             /01587402/ [Concomitant]
     Dosage: 10 MG, UNK
     Route: 048
  17. VEGIN [Concomitant]
  18. DIFLUPREDNATE [Concomitant]
     Dosage: 0.05 %, UNK
  19. HIRUDOID                           /00723701/ [Concomitant]
     Dosage: 0.3 %, UNK

REACTIONS (2)
  - Death [Fatal]
  - Blood pressure increased [Recovering/Resolving]
